FAERS Safety Report 5823645-0 (Version None)
Quarter: 2008Q3

REPORT INFORMATION
  Report Type: 
  Country: None (occurrence: None)
  Receive Date: 20080725
  Receipt Date: 20080716
  Transmission Date: 20090109
  Serious: Yes (Hospitalization)
  Sender: FDA-Public Use
  Company Number: US-ABBOTT-08P-163-0463912-00

PATIENT
  Sex: Male
  Weight: 120.31 kg

DRUGS (6)
  1. DEPAKOTE ER [Suspect]
     Indication: BIPOLAR DISORDER
     Route: 048
     Dates: start: 20060101, end: 20080131
  2. DEPAKOTE ER [Suspect]
     Route: 048
     Dates: start: 20080527
  3. LAMOTRIGINE [Suspect]
     Indication: BIPOLAR DISORDER
     Dosage: TITRATED UP TO 200MG
     Route: 048
     Dates: start: 20080201, end: 20080403
  4. LAMOTRIGINE [Suspect]
     Route: 048
     Dates: start: 20080404, end: 20080526
  5. TRAZODONE HCL [Concomitant]
     Indication: INSOMNIA
     Route: 048
     Dates: start: 20020101
  6. GENERIC PEPCID [Concomitant]
     Indication: GASTROOESOPHAGEAL REFLUX DISEASE
     Route: 048
     Dates: start: 20060101

REACTIONS (14)
  - ABDOMINAL DISCOMFORT [None]
  - ACNE [None]
  - APATHY [None]
  - COGNITIVE DISORDER [None]
  - ERUCTATION [None]
  - FATIGUE [None]
  - FEELING ABNORMAL [None]
  - HEADACHE [None]
  - HICCUPS [None]
  - MEMORY IMPAIRMENT [None]
  - NEPHROLITHIASIS [None]
  - NIGHT SWEATS [None]
  - NIGHTMARE [None]
  - TENDON PAIN [None]
